FAERS Safety Report 4312580-5 (Version None)
Quarter: 2004Q1

REPORT INFORMATION
  Report Type: 
  Country: None (occurrence: None)
  Receive Date: 20040303
  Receipt Date: 20040225
  Transmission Date: 20041129
  Serious: Yes (Death, Hospitalization)
  Sender: FDA-Public Use
  Company Number: 2004UW00619

PATIENT
  Age: 75 Year
  Sex: Female
  Weight: 73.0291 kg

DRUGS (4)
  1. IRESSA [Suspect]
     Indication: NON-SMALL CELL LUNG CANCER
     Dosage: 250 MG DAILY PO
     Route: 048
     Dates: start: 20040107, end: 20040112
  2. DECADRON [Concomitant]
  3. COUMADIN [Concomitant]
  4. XANAX [Concomitant]

REACTIONS (3)
  - LUNG INFILTRATION [None]
  - PNEUMONITIS [None]
  - RESPIRATORY FAILURE [None]
